FAERS Safety Report 5056552-4 (Version None)
Quarter: 2006Q3

REPORT INFORMATION
  Report Type: 
  Country: None (occurrence: None)
  Receive Date: 20060720
  Receipt Date: 20060713
  Transmission Date: 20061208
  Serious: Yes (Other)
  Sender: FDA-Public Use
  Company Number: GB-BOEHRINGER INGELHEIM PHARMACEUTICALS, INC.-2006-DE-03550GD

PATIENT
  Age: 31 Year
  Sex: Female

DRUGS (7)
  1. ALBUTEROL SPIROS [Suspect]
     Indication: ASTHMA
     Route: 055
  2. ALBUTEROL SPIROS [Suspect]
     Route: 055
  3. HYDROCORTISONE TAB [Suspect]
     Indication: ASTHMA
     Dosage: 200 MG IMMEDIATELY AND THEN 100 MG FOUR TIMES DAILY
     Route: 042
  4. IPRATROPIUM BROMIDE [Suspect]
     Indication: ASTHMA
     Route: 055
  5. AMINOPHYLLINE [Suspect]
     Indication: ASTHMA
     Route: 042
  6. OXYGEN [Suspect]
     Indication: ASTHMA
     Route: 055
  7. MEDICINALPRODUCT NOT SPECIFIED BY SENDER [Concomitant]

REACTIONS (12)
  - BLOOD PRESSURE INCREASED [None]
  - CAESAREAN SECTION [None]
  - CONDITION AGGRAVATED [None]
  - DRUG EXPOSURE DURING PREGNANCY [None]
  - HYPOVOLAEMIA [None]
  - METABOLIC ACIDOSIS [None]
  - PREMATURE LABOUR [None]
  - PROTEIN URINE PRESENT [None]
  - RESPIRATORY FAILURE [None]
  - SEPSIS [None]
  - SINUS TACHYCARDIA [None]
  - URINE KETONE BODY PRESENT [None]
